FAERS Safety Report 8112031-9 (Version None)
Quarter: 2012Q1

REPORT INFORMATION
  Report Type: 
  Country: None (occurrence: None)
  Receive Date: 20120203
  Receipt Date: 20120126
  Transmission Date: 20120608
  Serious: Yes (Hospitalization)
  Sender: FDA-Public Use
  Company Number: JP-ASTELLAS-2011JP009650

PATIENT
  Sex: Male
  Weight: 60 kg

DRUGS (2)
  1. PROGRAF [Suspect]
     Indication: RHEUMATOID ARTHRITIS
     Dosage: 1 MG, UID/QD
     Route: 048
     Dates: start: 20111006
  2. BREDININ [Concomitant]
     Indication: RHEUMATOID ARTHRITIS
     Dosage: 150 MG, UID/QD
     Route: 048
     Dates: start: 20110922

REACTIONS (1)
  - INTESTINAL OBSTRUCTION [None]
